FAERS Safety Report 8818853 (Version 1)
Quarter: 2012Q4

REPORT INFORMATION
  Report Type: 
  Country: US (occurrence: US)
  Receive Date: 20121001
  Receipt Date: 20121001
  Transmission Date: 20130627
  Serious: No
  Sender: FDA-Public Use
  Company Number: US-COVIDIEN/TYCO HEALTHCARE/MALLINCKRODT-T201203506

PATIENT
  Age: 26 Year
  Sex: Male

DRUGS (3)
  1. EXALGO EXTENDED RELEASE [Suspect]
     Indication: NECK PAIN
     Dosage: 16 mg, UNK
     Dates: start: 201208, end: 201208
  2. EXALGO EXTENDED RELEASE [Suspect]
     Indication: BACK PAIN
  3. ROXICODONE [Suspect]
     Indication: BREAKTHROUGH PAIN
     Dosage: UNK
     Dates: start: 201208

REACTIONS (1)
  - Trismus [Recovered/Resolved]
